FAERS Safety Report 18561675 (Version 1)
Quarter: 2020Q4

REPORT INFORMATION
  Report Type: Spontaneous
  Country: US (occurrence: US)
  Receive Date: 20201130
  Receipt Date: 20201130
  Transmission Date: 20210114
  Serious: No
  Sender: FDA-Public Use
  Company Number: US-ROCHE-2588076

PATIENT
  Age: 48 Year
  Sex: Male
  Weight: 95.34 kg

DRUGS (4)
  1. INSUL GLARGINE [Concomitant]
     Indication: TYPE 2 DIABETES MELLITUS
  2. TRASTUZUMAB. [Suspect]
     Active Substance: TRASTUZUMAB
     Indication: SALIVARY GLAND CANCER
     Route: 041
     Dates: start: 20200319, end: 20200319
  3. METFORMIN [Concomitant]
     Active Substance: METFORMIN HYDROCHLORIDE
     Indication: TYPE 2 DIABETES MELLITUS
     Dosage: YES
  4. LISPRO [Concomitant]
     Active Substance: INSULIN LISPRO
     Indication: TYPE 2 DIABETES MELLITUS

REACTIONS (3)
  - Off label use [Unknown]
  - Thrombocytopenia [Recovered/Resolved]
  - Antibiotic therapy [Unknown]

NARRATIVE: CASE EVENT DATE: 20200319
